FAERS Safety Report 19136932 (Version 1)
Quarter: 2021Q2

REPORT INFORMATION
  Report Type: Spontaneous
  Country: US (occurrence: US)
  Receive Date: 20210415
  Receipt Date: 20210415
  Transmission Date: 20210717
  Serious: Yes (Death, Life-Threatening, Hospitalization, Other)
  Sender: FDA-Public Use
  Company Number: US-AMGEN-USASP2021052334

PATIENT

DRUGS (6)
  1. ADRIAMYCIN [Suspect]
     Active Substance: DOXORUBICIN HYDROCHLORIDE
     Indication: HODGKIN^S DISEASE
     Dosage: UNK UNK, Q4WK, ON DAYS 1 AND 15 FOR UPTO 6 CYCLES
     Route: 042
  2. ADCETRIS [Suspect]
     Active Substance: BRENTUXIMAB VEDOTIN
     Indication: HODGKIN^S DISEASE
     Dosage: 1.2 MILLIGRAM/KILOGRAM, Q4WK, ADMINISTERED OVER 30 MIN WITHIN 1 HOUR AFTE AVD REGIMEN
     Route: 042
  3. FILGRASTIM [Suspect]
     Active Substance: FILGRASTIM
     Indication: PROPHYLAXIS
     Dosage: UNK
     Route: 065
  4. PEGFILGRASTIM [Suspect]
     Active Substance: PEGFILGRASTIM
     Indication: PROPHYLAXIS
     Dosage: UNK
     Route: 065
  5. DACARBAZINE. [Suspect]
     Active Substance: DACARBAZINE
     Indication: HODGKIN^S DISEASE
     Dosage: UNK UNK, Q4WK, ON DAYS 1 AND 15 FOR UPTO 6 CYCLES
     Route: 042
  6. VINBLASTINE [Suspect]
     Active Substance: VINBLASTINE
     Indication: HODGKIN^S DISEASE
     Dosage: UNK UNK, Q4WK, ON DAYS 1 AND 15 FOR UPTO 6 CYCLES
     Route: 042

REACTIONS (18)
  - Pulmonary toxicity [Unknown]
  - Fatigue [Unknown]
  - Neutropenia [Fatal]
  - Weight decreased [Unknown]
  - Bone pain [Unknown]
  - Anaemia [Unknown]
  - Pyrexia [Unknown]
  - Nausea [Unknown]
  - Stomatitis [Unknown]
  - Vomiting [Unknown]
  - Alopecia [Unknown]
  - Death [Fatal]
  - Febrile neutropenia [Unknown]
  - Unevaluable event [Unknown]
  - Constipation [Unknown]
  - Peripheral sensory neuropathy [Unknown]
  - Abdominal pain [Unknown]
  - Diarrhoea [Unknown]
